FAERS Safety Report 9675799 (Version 1)
Quarter: 2013Q4

REPORT INFORMATION
  Report Type: Spontaneous
  Country: FR (occurrence: FR)
  Receive Date: 20131107
  Receipt Date: 20131107
  Transmission Date: 20140711
  Serious: Yes (Hospitalization)
  Sender: FDA-Public Use
  Company Number: FR-BRISTOL-MYERS SQUIBB COMPANY-19720465

PATIENT
  Age: 86 Year
  Sex: Female

DRUGS (1)
  1. COUMADIN TABS 2 MG [Suspect]
     Indication: ATRIAL FIBRILLATION
     Dates: start: 2012

REACTIONS (6)
  - Haematoma [Recovered/Resolved]
  - Renal failure acute [Unknown]
  - Anaemia [Recovered/Resolved]
  - Pain [Recovering/Resolving]
  - International normalised ratio increased [Recovered/Resolved]
  - Overdose [Unknown]
